FAERS Safety Report 17411449 (Version 1)
Quarter: 2020Q1

REPORT INFORMATION
  Report Type: Spontaneous
  Country: US (occurrence: US)
  Receive Date: 20200212
  Receipt Date: 20200212
  Transmission Date: 20200409
  Serious: No
  Sender: FDA-Public Use
  Company Number: US-ASTRAZENECA-2020SE08996

PATIENT
  Sex: Male

DRUGS (9)
  1. CRESTOR [Suspect]
     Active Substance: ROSUVASTATIN CALCIUM
     Dosage: 5 DOSES EVERY 2 WEEKS
     Route: 048
  2. B6 [Concomitant]
     Active Substance: PYRIDOXINE HYDROCHLORIDE
  3. OMEGA 3 [Concomitant]
     Active Substance: OMEGA-3 FATTY ACIDS
  4. CURCUMIN [Concomitant]
     Active Substance: CURCUMIN
     Dosage: 2000.0MG UNKNOWN
  5. BRILINTA [Suspect]
     Active Substance: TICAGRELOR
     Indication: ACUTE CORONARY SYNDROME
     Route: 048
  6. ASPIRIN. [Concomitant]
     Active Substance: ASPIRIN
     Dosage: 40.5MG UNKNOWN
  7. VITAMIN B12 [Concomitant]
     Active Substance: CYANOCOBALAMIN
  8. OPTIMIZE FOLATE [Concomitant]
     Dosage: 100000.0UG UNKNOWN
  9. NIACIN. [Concomitant]
     Active Substance: NIACIN
     Dosage: 1500.0MG UNKNOWN

REACTIONS (2)
  - Thrombosis [Unknown]
  - Medication error [Unknown]
